FAERS Safety Report 20280565 (Version 1)
Quarter: 2022Q1

REPORT INFORMATION
  Report Type: Spontaneous
  Country: DE (occurrence: DE)
  Receive Date: 20220103
  Receipt Date: 20220103
  Transmission Date: 20220423
  Serious: Yes (Other)
  Sender: FDA-Public Use
  Company Number: DE-Shilpa Medicare Limited-SML-DE-2021-01450

PATIENT
  Age: 82 Year
  Sex: Female

DRUGS (1)
  1. GEMCITABINE [Suspect]
     Active Substance: GEMCITABINE
     Indication: T-cell lymphoma
     Dosage: 600 MILLIGRAM (12 DOSES TOTAL.)

REACTIONS (2)
  - Condition aggravated [Recovered/Resolved]
  - Off label use [Unknown]
